FAERS Safety Report 8436490-7 (Version None)
Quarter: 2012Q2

REPORT INFORMATION
  Report Type: 
  Country: None (occurrence: None)
  Receive Date: 20120614
  Receipt Date: 20120607
  Transmission Date: 20120825
  Serious: Yes (Other)
  Sender: FDA-Public Use
  Company Number: US-GLAXOSMITHKLINE-A0804305A

PATIENT
  Age: 62 Year
  Sex: Male
  Weight: 126.8 kg

DRUGS (1)
  1. ROSIGLITAZONE MALEATE [Suspect]
     Indication: TYPE 2 DIABETES MELLITUS
     Dosage: 8MG PER DAY
     Route: 048
     Dates: start: 20021018, end: 20070418

REACTIONS (2)
  - PULMONARY ARTERIAL HYPERTENSION [None]
  - DYSPNOEA EXERTIONAL [None]
